FAERS Safety Report 9223986 (Version 1)
Quarter: 2013Q2

REPORT INFORMATION
  Report Type: Spontaneous
  Country: GB (occurrence: GB)
  Receive Date: 20130411
  Receipt Date: 20130411
  Transmission Date: 20140414
  Serious: Yes (Other)
  Sender: FDA-Public Use
  Company Number: GB-RANBAXY-2013R1-67071

PATIENT
  Age: 67 Year
  Sex: Female
  Weight: 71.66 kg

DRUGS (3)
  1. AMOXICILLIN [Suspect]
     Indication: GINGIVAL INFECTION
     Dosage: 500 MG, TID
     Route: 048
     Dates: start: 20130304, end: 20130305
  2. MULTIVITAMIN [Concomitant]
     Indication: PRODUCT USED FOR UNKNOWN INDICATION
     Dosage: UNK
     Route: 065
  3. PRAVASTATIN [Concomitant]
     Indication: PRODUCT USED FOR UNKNOWN INDICATION
     Dosage: UNK
     Route: 065
     Dates: end: 201212

REACTIONS (4)
  - Abdominal pain upper [Recovered/Resolved]
  - Spinal pain [Recovered/Resolved]
  - Pain in extremity [Recovered/Resolved]
  - Abdominal discomfort [Recovered/Resolved]
